FAERS Safety Report 24576279 (Version 6)
Quarter: 2025Q4

REPORT INFORMATION
  Report Type: Spontaneous
  Country: US (occurrence: US)
  Receive Date: 20241104
  Receipt Date: 20251119
  Transmission Date: 20260118
  Serious: No
  Sender: ROCHE
  Company Number: US-ROCHE-10000121650

PATIENT
  Age: 32 Year
  Sex: Male
  Weight: 84.37 kg

DRUGS (3)
  1. HEMLIBRA [Suspect]
     Active Substance: EMICIZUMAB-KXWH
     Indication: Factor VIII deficiency
     Dosage: STRENGTH: 150 MG/0.7ML
     Route: 058
     Dates: start: 20230307
  2. HEMLIBRA [Suspect]
     Active Substance: EMICIZUMAB-KXWH
     Dosage: STRENGTH: 150 MG/ML
     Route: 058
     Dates: start: 20230307
  3. HEMLIBRA [Suspect]
     Active Substance: EMICIZUMAB-KXWH
     Dosage: STRENGTH:300 MG/ 2ML
     Route: 058
     Dates: start: 202303

REACTIONS (6)
  - Haemorrhage [Recovered/Resolved]
  - Tooth fracture [Unknown]
  - Gingival swelling [Unknown]
  - Haemorrhage [Unknown]
  - Vomiting [Unknown]
  - Arthralgia [Unknown]

NARRATIVE: CASE EVENT DATE: 20241017
